FAERS Safety Report 17263168 (Version 1)
Quarter: 2020Q1

REPORT INFORMATION
  Report Type: Spontaneous
  Country: US (occurrence: US)
  Receive Date: 20200111
  Receipt Date: 20200111
  Transmission Date: 20200409
  Serious: No
  Sender: FDA-Public Use
  Company Number: None

PATIENT
  Age: 60 Year
  Sex: Female
  Weight: 76.95 kg

DRUGS (1)
  1. BUPRENORPHINE/NALOXONE SUBLINGUAL FILM 8 MG/2 MG [Suspect]
     Active Substance: BUPRENORPHINE\NALOXONE

REACTIONS (7)
  - Product substitution issue [None]
  - Intentional product use issue [None]
  - Therapeutic response changed [None]
  - Drug withdrawal syndrome [None]
  - Nausea [None]
  - Headache [None]
  - Product taste abnormal [None]

NARRATIVE: CASE EVENT DATE: 20200108
